FAERS Safety Report 5811863-7 (Version None)
Quarter: 2008Q3

REPORT INFORMATION
  Report Type: 
  Country: None (occurrence: None)
  Receive Date: 20080716
  Receipt Date: 20080714
  Transmission Date: 20090109
  Serious: Yes (Hospitalization)
  Sender: FDA-Public Use
  Company Number: US-BRISTOL-MYERS SQUIBB COMPANY-14262489

PATIENT
  Age: 57 Year
  Sex: Male
  Weight: 102 kg

DRUGS (3)
  1. TAXOL [Suspect]
     Indication: METASTATIC NEOPLASM
     Dosage: INITAL DOSE:4APR08.TOTAL NO OF COURSES:2 1/2.PROTOCOL PRESCRIBED DOSE PER COURSE:200MG/M2.75%DOSE
     Dates: start: 20080425, end: 20080425
  2. CARBOPLATIN [Suspect]
     Indication: METASTATIC NEOPLASM
     Dosage: INITAL DOSE:4APR08.TOTAL NO OF COURSES:2 1/2.PROTOCOL PRESCRIBED DOSE PER COURSE:AUC OF 6.0.75%DOSE
     Dates: start: 20080425, end: 20080425
  3. ETOPOSIDE [Suspect]
     Indication: METASTATIC NEOPLASM
     Dosage: INITAL DOSE:4APR08.TOTAL NO OF COUR:21/2.PROTOCOL PRESCRIBED DOSE PER COURSE:50/100MG.75%DOSE
     Route: 048
     Dates: start: 20080504, end: 20080504

REACTIONS (1)
  - DYSPNOEA [None]
